FAERS Safety Report 4996684-X (Version None)
Quarter: 2006Q2

REPORT INFORMATION
  Report Type: 
  Country: None (occurrence: None)
  Receive Date: 20060509
  Receipt Date: 20060502
  Transmission Date: 20061013
  Serious: Yes (Disabling, Other)
  Sender: FDA-Public Use
  Company Number: US-MERCK-0605USA00586

PATIENT
  Age: 59 Year
  Sex: Female

DRUGS (7)
  1. PROGESTERONE [Concomitant]
     Route: 061
  2. OMEGA-3 MARINE TRIGLYCERIDES [Concomitant]
     Route: 065
  3. CALCIUM (UNSPECIFIED) [Concomitant]
     Route: 065
  4. VITAMINS (UNSPECIFIED) [Concomitant]
     Route: 065
  5. PREMARIN [Concomitant]
     Route: 065
  6. FOSAMAX [Suspect]
     Route: 048
     Dates: end: 20060501
  7. IODINE [Concomitant]
     Indication: HYPOTHYROIDISM
     Route: 048

REACTIONS (1)
  - RETINAL DETACHMENT [None]
